FAERS Safety Report 9296758 (Version 1)
Quarter: 2013Q2

REPORT INFORMATION
  Report Type: Spontaneous
  Country: BR (occurrence: BR)
  Receive Date: 20130517
  Receipt Date: 20130517
  Transmission Date: 20140414
  Serious: Yes (Life-Threatening, Other)
  Sender: FDA-Public Use
  Company Number: BR-ELI_LILLY_AND_COMPANY-BR201305003281

PATIENT
  Age: 50 Year
  Sex: Male
  Weight: 75 kg

DRUGS (9)
  1. HUMULIN NPH [Suspect]
     Indication: TYPE 1 DIABETES MELLITUS
     Dosage: UNK, UNKNOWN
     Route: 065
     Dates: start: 1997, end: 20130320
  2. HUMULIN NPH [Suspect]
     Indication: TYPE 1 DIABETES MELLITUS
     Dosage: 20 IU, EACH MORNING
     Route: 058
     Dates: end: 20130404
  3. HUMULIN NPH [Suspect]
     Dosage: 20 IU, OTHER
     Route: 058
  4. HUMULIN NPH [Suspect]
     Dosage: 10 IU, OTHER
     Route: 058
     Dates: end: 20130404
  5. HUMULIN NPH [Suspect]
     Dosage: 26 IU, EACH MORNING
     Route: 058
     Dates: start: 20130404
  6. HUMULIN NPH [Suspect]
     Dosage: 12 IU, OTHER
     Route: 058
     Dates: start: 20130404
  7. METFORMINA [Concomitant]
     Indication: DIABETES MELLITUS
     Dosage: 850 MG, TID
     Route: 065
  8. ENALAPRIL [Concomitant]
     Indication: BLOOD PRESSURE
     Dosage: 10 MG, UNKNOWN
     Route: 065
  9. AAS [Concomitant]
     Dosage: 100 MG, UNKNOWN
     Route: 065

REACTIONS (5)
  - Blood glucose decreased [Recovered/Resolved]
  - Convulsion [Unknown]
  - Hypotonia [Unknown]
  - Blood glucose fluctuation [Recovered/Resolved]
  - Pallor [Unknown]
